FAERS Safety Report 9414789 (Version 2)
Quarter: 2013Q3

REPORT INFORMATION
  Report Type: Spontaneous
  Country: US (occurrence: US)
  Receive Date: 20130723
  Receipt Date: 20130807
  Transmission Date: 20140515
  Serious: Yes (Death)
  Sender: FDA-Public Use
  Company Number: US-PFIZER INC-2013211733

PATIENT
  Age: 68 Year
  Sex: Male

DRUGS (18)
  1. CALCIUM WITH VITAMIN D [Concomitant]
     Dosage: UNK
  2. VITAMIN C [Concomitant]
     Dosage: 1000 MG, UNK
  3. OCUVITE [Concomitant]
     Dosage: UNK
  4. ZYRTEC [Concomitant]
     Dosage: 10 MG, UNK
  5. INLYTA [Suspect]
     Dosage: 5 MG, 2X/DAY
     Route: 048
  6. LEVOTHYROXINE [Concomitant]
     Dosage: 25 UG, UNK
  7. VITAMIN B12 [Concomitant]
     Dosage: 100 UG, UNK
  8. PROVENTIL INHALER [Concomitant]
     Dosage: 90 UG, UNK
  9. ALBUTEROL [Concomitant]
     Dosage: 0.5%, UNK
  10. OMEPRAZOLE [Concomitant]
     Dosage: 20 MG, UNK
  11. TAMSULOSIN [Concomitant]
     Dosage: 0.4 MG, UNK
  12. DILTIAZEM [Concomitant]
     Dosage: 120 MG, UNK
  13. ADVAIR [Concomitant]
     Dosage: FLUTICASONE PROPIONATE (115MCG), SALMETEROL XINAFOATE (21MCG), UNK
  14. AVODART [Concomitant]
     Dosage: 0.5 MG, UNK
  15. PREDNISOLONE [Concomitant]
     Dosage: 5 MG, UNK
  16. GLUCOSAMINE [Concomitant]
     Dosage: UNK
  17. CHONDROITIN [Concomitant]
     Dosage: UNK
  18. OMEGA 3 [Concomitant]
     Dosage: 1200 MG, UNK

REACTIONS (1)
  - Death [Fatal]
